FAERS Safety Report 4786059-0 (Version None)
Quarter: 2005Q4

REPORT INFORMATION
  Report Type: 
  Country: None (occurrence: None)
  Receive Date: 20051003
  Receipt Date: 20050923
  Transmission Date: 20060501
  Serious: Yes (Other)
  Sender: FDA-Public Use
  Company Number: 2005UW14293

PATIENT
  Age: 43 Year
  Sex: Female
  Weight: 57.6 kg

DRUGS (6)
  1. PULMICORT [Suspect]
     Indication: COUGH
     Route: 055
     Dates: start: 20050919
  2. HUMALOG [Concomitant]
  3. LANTUS [Concomitant]
  4. NEURONTIN [Concomitant]
  5. ASPIRIN [Concomitant]
  6. DIOVAN EYE DROPS [Concomitant]
     Indication: GLAUCOMA

REACTIONS (1)
  - BLOOD GLUCOSE INCREASED [None]
